FAERS Safety Report 4536627-6 (Version None)
Quarter: 2004Q4

REPORT INFORMATION
  Report Type: 
  Country: None (occurrence: None)
  Receive Date: 20041223
  Receipt Date: 20041122
  Transmission Date: 20050328
  Serious: Yes (Other)
  Sender: FDA-Public Use
  Company Number: 200412663DE

PATIENT
  Age: 41 Year
  Sex: Male
  Weight: 89 kg

DRUGS (1)
  1. KETEK [Suspect]
     Indication: SINUSITIS
     Route: 048
     Dates: start: 20030101, end: 20030101

REACTIONS (5)
  - AGEUSIA [None]
  - ANOSMIA [None]
  - FUNGAL INFECTION [None]
  - GLOSSODYNIA [None]
  - ORAL MUCOSAL DISCOLOURATION [None]
